FAERS Safety Report 18924587 (Version 1)
Quarter: 2021Q1

REPORT INFORMATION
  Report Type: Spontaneous
  Country: TR (occurrence: TR)
  Receive Date: 20210223
  Receipt Date: 20210223
  Transmission Date: 20210420
  Serious: Yes (Life-Threatening, Hospitalization, Other)
  Sender: FDA-Public Use
  Company Number: TR-GRANULES-TR-2021GRALIT00147

PATIENT
  Age: 15 Year
  Sex: Female

DRUGS (7)
  1. RISPERIDONE. [Suspect]
     Active Substance: RISPERIDONE
     Indication: PRODUCT USED FOR UNKNOWN INDICATION
     Dosage: 20 PILLS
     Route: 065
  2. IBUPROFEN. [Suspect]
     Active Substance: IBUPROFEN
     Indication: PRODUCT USED FOR UNKNOWN INDICATION
     Dosage: 12 PILLS
     Route: 065
  3. AMOXICILLIN;CLAVULANIC ACID [Suspect]
     Active Substance: AMOXICILLIN\CLAVULANIC ACID
     Indication: PRODUCT USED FOR UNKNOWN INDICATION
     Dosage: 15 PILLS
     Route: 065
  4. ACETAMINOPHEN. [Suspect]
     Active Substance: ACETAMINOPHEN
     Indication: PRODUCT USED FOR UNKNOWN INDICATION
     Dosage: 10 PILLS
     Route: 065
  5. BENZODIAZEPINE [Suspect]
     Active Substance: BENZODIAZEPINE
     Indication: PRODUCT USED FOR UNKNOWN INDICATION
     Dosage: 20 PILLS
     Route: 065
  6. N?ACETYLCYSTEINE [Interacting]
     Active Substance: ACETYLCYSTEINE
     Indication: TOXICITY TO VARIOUS AGENTS
     Route: 065
  7. HYDROXYZINE [Suspect]
     Active Substance: HYDROXYZINE HYDROCHLORIDE
     Indication: PRODUCT USED FOR UNKNOWN INDICATION
     Dosage: 30 PILLS
     Route: 065

REACTIONS (4)
  - Suicide attempt [Unknown]
  - Altered state of consciousness [Recovering/Resolving]
  - Toxicity to various agents [Unknown]
  - Intentional overdose [Unknown]
